FAERS Safety Report 17089368 (Version 3)
Quarter: 2019Q4

REPORT INFORMATION
  Report Type: Report from Study
  Country: CA (occurrence: CA)
  Receive Date: 20191128
  Receipt Date: 20191216
  Transmission Date: 20200122
  Serious: Yes (Other)
  Sender: FDA-Public Use
  Company Number: NVSC2019CA050811

PATIENT
  Sex: Male

DRUGS (3)
  1. TAFINLAR [Suspect]
     Active Substance: DABRAFENIB MESYLATE
     Dosage: 300 MG, UNK
     Route: 048
     Dates: end: 20191205
  2. TAFINLAR [Suspect]
     Active Substance: DABRAFENIB MESYLATE
     Indication: METASTATIC MALIGNANT MELANOMA
     Dosage: 150 MG, BID (CAPSULE)
     Route: 048
     Dates: start: 20191024
  3. MEKINIST [Suspect]
     Active Substance: TRAMETINIB DIMETHYL SULFOXIDE
     Indication: METASTATIC MALIGNANT MELANOMA
     Dosage: 2 MG, QD (TABLET)
     Route: 048
     Dates: start: 20191024, end: 20191205

REACTIONS (13)
  - Night sweats [Not Recovered/Not Resolved]
  - Hyperhidrosis [Unknown]
  - Body temperature increased [Recovered/Resolved]
  - Fatigue [Unknown]
  - Chills [Unknown]
  - Feeling hot [Unknown]
  - Eye swelling [Recovered/Resolved]
  - Pyrexia [Unknown]
  - Syncope [Unknown]
  - Malaise [Unknown]
  - Dehydration [Unknown]
  - Dizziness [Unknown]
  - Asthenia [Unknown]
